FAERS Safety Report 6815977-4 (Version None)
Quarter: 2010Q3

REPORT INFORMATION
  Report Type: 
  Country: None (occurrence: None)
  Receive Date: 20100705
  Receipt Date: 20100624
  Transmission Date: 20110219
  Serious: No
  Sender: FDA-Public Use
  Company Number: US-BIOGENIDEC-2010BI022019

PATIENT
  Age: 38 Year
  Sex: Female

DRUGS (1)
  1. TYSABRI [Suspect]
     Indication: MULTIPLE SCLEROSIS
     Route: 042
     Dates: start: 20080630

REACTIONS (7)
  - DYSPHAGIA [None]
  - DYSPHONIA [None]
  - GAIT DISTURBANCE [None]
  - METAMORPHOPSIA [None]
  - MUSCULAR WEAKNESS [None]
  - VERTIGO [None]
  - VISUAL IMPAIRMENT [None]
